FAERS Safety Report 5999158-2 (Version None)
Quarter: 2008Q4

REPORT INFORMATION
  Report Type: 
  Country: None (occurrence: None)
  Receive Date: 20081215
  Receipt Date: 20080730
  Transmission Date: 20090506
  Serious: No
  Sender: FDA-Public Use
  Company Number: US-AMGEN-KDL298358

PATIENT
  Sex: Female

DRUGS (3)
  1. ENBREL [Suspect]
     Indication: RHEUMATOID ARTHRITIS
     Route: 058
     Dates: start: 20060701
  2. ENBREL [Suspect]
     Indication: ANKYLOSING SPONDYLITIS
  3. LEFLUNOMIDE [Concomitant]

REACTIONS (1)
  - CARPAL TUNNEL SYNDROME [None]
